FAERS Safety Report 4653778-6 (Version None)
Quarter: 2005Q2

REPORT INFORMATION
  Report Type: 
  Country: None (occurrence: None)
  Receive Date: 20050504
  Receipt Date: 20050421
  Transmission Date: 20051028
  Serious: Yes (Other)
  Sender: FDA-Public Use
  Company Number: 2005059717

PATIENT
  Age: 37 Year
  Sex: Male
  Weight: 83.9154 kg

DRUGS (14)
  1. CELEBREX [Suspect]
     Indication: OSTEOARTHRITIS
     Dosage: ORAL
     Route: 048
     Dates: start: 19950101, end: 19950101
  2. CELEBREX [Suspect]
     Indication: RHEUMATOID ARTHRITIS
     Dosage: ORAL
     Route: 048
     Dates: start: 19950101, end: 19950101
  3. BEXTRA [Suspect]
     Indication: OSTEOARTHRITIS
     Dosage: 10 MG (10 MG, 1 IN 1 D), ORAL
     Route: 048
  4. BEXTRA [Suspect]
     Indication: RHEUMATOID ARTHRITIS
     Dosage: 10 MG (10 MG, 1 IN 1 D), ORAL
     Route: 048
  5. IBUPROFEN [Suspect]
     Indication: OSTEOARTHRITIS
     Dosage: 4000 MG (800 MG, 5 IN 1 D), ORAL
     Route: 048
  6. IBUPROFEN [Suspect]
     Indication: RHEUMATOID ARTHRITIS
     Dosage: 4000 MG (800 MG, 5 IN 1 D), ORAL
     Route: 048
  7. ROFECOXIB [Suspect]
     Indication: OSTEOARTHRITIS
     Dosage: ORAL
     Route: 048
  8. ROFECOXIB [Suspect]
     Indication: RHEUMATOID ARTHRITIS
     Dosage: ORAL
     Route: 048
  9. VICODIN [Suspect]
     Indication: OSTEOARTHRITIS
     Dosage: 750 MG
  10. VICODIN [Suspect]
     Indication: RHEUMATOID ARTHRITIS
     Dosage: 750 MG
  11. CORTISONE ACETATE [Suspect]
     Indication: OSTEOARTHRITIS
     Dosage: INTRASYNOVIAL
     Route: 035
  12. CORTISONE ACETATE [Suspect]
     Indication: RHEUMATOID ARTHRITIS
     Dosage: INTRASYNOVIAL
     Route: 035
  13. PANTOPRAZOLE (PANTOPRAZOLE) [Concomitant]
  14. VITAMINS (VITAMINS) [Concomitant]

REACTIONS (7)
  - CONVULSION [None]
  - DRUG INEFFECTIVE [None]
  - EXOSTOSIS [None]
  - MOVEMENT DISORDER [None]
  - PAIN [None]
  - PHARMACEUTICAL PRODUCT COMPLAINT [None]
  - RECTAL HAEMORRHAGE [None]
